FAERS Safety Report 6451136-5 (Version None)
Quarter: 2009Q4

REPORT INFORMATION
  Report Type: 
  Country: None (occurrence: None)
  Receive Date: 20091123
  Receipt Date: 20091112
  Transmission Date: 20100525
  Serious: Yes (Hospitalization, Other)
  Sender: FDA-Public Use
  Company Number: US-PFIZER INC-2009269676

PATIENT
  Sex: Female

DRUGS (3)
  1. DETROL LA [Suspect]
     Dosage: 4 MG, DAILY
     Route: 048
  2. DETROL LA [Suspect]
     Route: 048
  3. REBIF [Suspect]

REACTIONS (4)
  - CONTUSION [None]
  - FALL [None]
  - HAEMORRHAGE [None]
  - HYPONATRAEMIA [None]
